FAERS Safety Report 15477491 (Version 3)
Quarter: 2019Q1

REPORT INFORMATION
  Report Type: Spontaneous
  Country: ES (occurrence: ES)
  Receive Date: 20181009
  Receipt Date: 20190222
  Transmission Date: 20190417
  Serious: Yes (Other)
  Sender: FDA-Public Use
  Company Number: ES-AMGEN-ESPSP2018139930

PATIENT
  Age: 52 Year
  Sex: Female

DRUGS (2)
  1. METHOTREXATE SODIUM. [Concomitant]
     Active Substance: METHOTREXATE SODIUM
     Indication: PYODERMA GANGRENOSUM
     Dosage: 10 MG, WEEKLY
     Route: 058
     Dates: start: 201506
  2. ENBREL [Suspect]
     Active Substance: ETANERCEPT
     Indication: PYODERMA GANGRENOSUM
     Dosage: 100 MG, WEEKLY (50 MG, QW2)
     Route: 058
     Dates: start: 201506

REACTIONS (3)
  - Product use in unapproved indication [Unknown]
  - Hypersensitivity [Unknown]
  - Angioedema [Unknown]
